FAERS Safety Report 8363382-4 (Version None)
Quarter: 2012Q2

REPORT INFORMATION
  Report Type: 
  Country: None (occurrence: None)
  Receive Date: 20120516
  Receipt Date: 20111221
  Transmission Date: 20120825
  Serious: No
  Sender: FDA-Public Use
  Company Number: US-ALEXION-A201101927

PATIENT
  Sex: Female

DRUGS (1)
  1. SOLIRIS [Suspect]
     Indication: PAROXYSMAL NOCTURNAL HAEMOGLOBINURIA
     Dosage: 900 MG, Q2W
     Route: 042
     Dates: start: 20111020

REACTIONS (4)
  - BODY TEMPERATURE INCREASED [None]
  - MALAISE [None]
  - ABDOMINAL PAIN LOWER [None]
  - BLOOD LACTATE DEHYDROGENASE ABNORMAL [None]
